FAERS Safety Report 16660060 (Version 1)
Quarter: 2019Q3

REPORT INFORMATION
  Report Type: Spontaneous
  Country: US (occurrence: US)
  Receive Date: 20190802
  Receipt Date: 20190802
  Transmission Date: 20191004
  Serious: Yes (Other)
  Sender: FDA-Public Use
  Company Number: US-GW PHARMA-201907USGW2602

PATIENT

DRUGS (2)
  1. EPIDIOLEX [Suspect]
     Active Substance: CANNABIDIOL
     Indication: LENNOX-GASTAUT SYNDROME
     Dosage: STARTING DOSE UNKNOWN
     Dates: start: 2019, end: 20190708
  2. EPIDIOLEX [Suspect]
     Active Substance: CANNABIDIOL
     Dosage: 350 MILLIGRAM, BID
     Dates: start: 20190709

REACTIONS (2)
  - Seizure [Unknown]
  - Incorrect route of product administration [Unknown]

NARRATIVE: CASE EVENT DATE: 2019
